FAERS Safety Report 7424472 (Version 2)
Quarter: 2013Q1

REPORT INFORMATION
  Report Type: Spontaneous
  Country: US (occurrence: US)
  Receive Date: 20100618
  Receipt Date: 20130321
  Transmission Date: 20140127
  Serious: Yes (Other)
  Sender: FDA-Public Use
  Company Number: US-RANBAXY-2010US-34544

PATIENT
  Age: 34 Year
  Sex: Male

DRUGS (5)
  1. CLINDAMYCIN [Suspect]
     Indication: PAIN
     Dosage: 300 MG, QID
     Route: 065
  2. CLINDAMYCIN [Suspect]
     Indication: SWELLING
  3. PENICILLIN V POTASSIUM [Suspect]
     Indication: PAIN
     Dosage: 500 MG, QID
     Route: 065
  4. PENICILLIN V POTASSIUM [Suspect]
     Indication: SWELLING
  5. COTRIMOXAZOLE [Concomitant]
     Indication: PRODUCT USED FOR UNKNOWN INDICATION
     Dosage: 160 UNK, UNK
     Route: 065

REACTIONS (2)
  - Acute febrile neutrophilic dermatosis [Recovered/Resolved]
  - Drug ineffective [Unknown]
